FAERS Safety Report 8350331-8 (Version None)
Quarter: 2012Q2

REPORT INFORMATION
  Report Type: 
  Country: None (occurrence: None)
  Receive Date: 20120510
  Receipt Date: 20120430
  Transmission Date: 20120825
  Serious: Yes (Other)
  Sender: FDA-Public Use
  Company Number: FR-ROCHE-1058622

PATIENT
  Sex: Female

DRUGS (7)
  1. XOLAIR [Suspect]
     Indication: ASTHMA
     Dates: start: 20100401, end: 20111115
  2. PREDNISOLONE [Concomitant]
  3. XOLAIR [Suspect]
     Dates: start: 20111018
  4. PROZAC [Concomitant]
  5. VENTOLIN [Concomitant]
  6. LEVOTHYROXINE SODIUM [Concomitant]
  7. LASIX [Concomitant]

REACTIONS (5)
  - INJECTION SITE SWELLING [None]
  - HYPERSENSITIVITY [None]
  - GENERALISED ERYTHEMA [None]
  - PHARYNGEAL OEDEMA [None]
  - URTICARIA [None]
